FAERS Safety Report 8717315 (Version 2)
Quarter: 2012Q4

REPORT INFORMATION
  Report Type: 
  Country: IL (occurrence: IL)
  Receive Date: 20120810
  Receipt Date: 20120904
  Transmission Date: 20130627
  Serious: No
  Sender: FDA-Public Use
  Company Number: IL-B.I. PHARMACEUTICALS,INC./RIDGEFIELD-2012-AP-00641RI

PATIENT
  Age: 78 Year
  Sex: Female

DRUGS (8)
  1. PRADAXA [Suspect]
     Indication: ATRIAL FIBRILLATION
     Dosage: 220 mg
     Route: 048
     Dates: start: 20120723, end: 20120725
  2. FUROSEMIDE [Concomitant]
     Dosage: 80 mg
  3. INS. LEVEMIR [Concomitant]
     Dosage: formulation: injection, daily dose: 60 units
  4. LOSARTAN POTASSIUM [Concomitant]
     Dosage: 100 mg
  5. SIMVASTATIN [Concomitant]
     Dosage: 20 mg
  6. ATENOLOL [Concomitant]
     Dosage: 100 mg
  7. AMLODIPINE [Concomitant]
     Dosage: 5 mg
  8. ASPIRIN [Concomitant]
     Dosage: 100 mg

REACTIONS (1)
  - Chest pain [Not Recovered/Not Resolved]
